FAERS Safety Report 6166228-8 (Version None)
Quarter: 2009Q2

REPORT INFORMATION
  Report Type: 
  Country: None (occurrence: None)
  Receive Date: 20090424
  Receipt Date: 20090415
  Transmission Date: 20091009
  Serious: Yes (Other)
  Sender: FDA-Public Use
  Company Number: PHHY2009ES15141

PATIENT
  Sex: Female
  Weight: 2.16 kg

DRUGS (2)
  1. CARBAMAZEPINE [Suspect]
     Indication: HEADACHE
     Route: 064
  2. CARBAMAZEPINE [Suspect]
     Indication: PETIT MAL EPILEPSY

REACTIONS (2)
  - DRUG EXPOSURE DURING PREGNANCY [None]
  - PREMATURE BABY [None]
